FAERS Safety Report 15343414 (Version 3)
Quarter: 2022Q4

REPORT INFORMATION
  Report Type: Spontaneous
  Country: JP (occurrence: JP)
  Receive Date: 20180903
  Receipt Date: 20221003
  Transmission Date: 20230112
  Serious: Yes (Other)
  Sender: FDA-Public Use
  Company Number: JP-MSD-1807JPN000466J

PATIENT
  Age: 84 Year
  Sex: Female
  Weight: 50 kg

DRUGS (12)
  1. ROCURONIUM BROMIDE [Suspect]
     Active Substance: ROCURONIUM BROMIDE
     Indication: Neuromuscular blocking therapy
     Dosage: 1.0 MG/KG, UNK
     Route: 041
  2. ROCURONIUM BROMIDE [Suspect]
     Active Substance: ROCURONIUM BROMIDE
     Dosage: 7?G/KG/MIN, UNK
  3. BRIDION [Suspect]
     Active Substance: SUGAMMADEX
     Indication: Neuromuscular blockade reversal
     Dosage: UNK
     Route: 042
  4. LEVOTHYROXINE SODIUM [Concomitant]
     Active Substance: LEVOTHYROXINE SODIUM
     Dosage: UNK
     Route: 048
  5. SITAGLIPTIN PHOSPHATE [Concomitant]
     Active Substance: SITAGLIPTIN PHOSPHATE
     Dosage: UNK
     Route: 048
  6. ACETYLSALICYLIC ACID;LANSOPRAZOLE [Concomitant]
     Dosage: UNK
  7. MIDAZOLAM [Concomitant]
     Active Substance: MIDAZOLAM
     Dosage: 2.5 MG, UNK
     Route: 030
  8. REMIFENTANIL HYDROCHLORIDE [Concomitant]
     Active Substance: REMIFENTANIL HYDROCHLORIDE
     Indication: Induction of anaesthesia
     Dosage: 0.2 MICROG/KG/MIN, UNK
     Route: 051
  9. REMIFENTANIL HYDROCHLORIDE [Concomitant]
     Active Substance: REMIFENTANIL HYDROCHLORIDE
     Indication: Maintenance of anaesthesia
     Dosage: 0.1-0.2 MICROG/KG/MIN, UNK
     Route: 051
  10. THIOPENTAL SODIUM [Concomitant]
     Active Substance: THIOPENTAL SODIUM
     Indication: Induction of anaesthesia
     Dosage: 5 MG/KG, UNK
     Route: 051
  11. DESFLURANE [Concomitant]
     Active Substance: DESFLURANE
     Indication: Maintenance of anaesthesia
     Dosage: 4 %, UNK
     Route: 051
  12. LEVOBUPIVACAINE HYDROCHLORIDE [Concomitant]
     Active Substance: LEVOBUPIVACAINE HYDROCHLORIDE
     Indication: Maintenance of anaesthesia
     Dosage: 4M?/H, UNK
     Route: 051

REACTIONS (3)
  - Delayed recovery from anaesthesia [Recovered/Resolved]
  - Recurrence of neuromuscular blockade [Recovered/Resolved]
  - Overdose [Unknown]
